FAERS Safety Report 24880335 (Version 1)
Quarter: 2025Q1

REPORT INFORMATION
  Report Type: Spontaneous
  Country: IT (occurrence: IT)
  Receive Date: 20250123
  Receipt Date: 20250123
  Transmission Date: 20250409
  Serious: Yes (Other)
  Sender: PFIZER
  Company Number: IT-PFIZER INC-PV202500008868

PATIENT
  Age: 74 Year
  Sex: Female

DRUGS (4)
  1. TOVIAZ [Suspect]
     Active Substance: FESOTERODINE FUMARATE
     Indication: Hypertonic bladder
  2. TOVIAZ [Suspect]
     Active Substance: FESOTERODINE FUMARATE
     Dates: end: 2023
  3. TOVIAZ [Suspect]
     Active Substance: FESOTERODINE FUMARATE
     Dates: start: 202409, end: 2024
  4. TOVIAZ [Suspect]
     Active Substance: FESOTERODINE FUMARATE
     Dates: start: 2024

REACTIONS (2)
  - Cataract [Unknown]
  - Dry eye [Unknown]

NARRATIVE: CASE EVENT DATE: 20240101
